FAERS Safety Report 4744642-2 (Version None)
Quarter: 2005Q3

REPORT INFORMATION
  Report Type: 
  Country: None (occurrence: None)
  Receive Date: 20050812
  Receipt Date: 20050812
  Transmission Date: 20060218
  Serious: Yes (Hospitalization)
  Sender: FDA-Public Use
  Company Number: None

PATIENT
  Age: 61 Year
  Sex: Female
  Weight: 80.7403 kg

DRUGS (4)
  1. ZOCOR [Suspect]
     Indication: HYPERLIPIDAEMIA
     Dosage: 80MG   HS  ORAL;  40MG  HS  ORAL
     Route: 048
     Dates: start: 20050101, end: 20050728
  2. ZOCOR [Suspect]
     Indication: HYPERLIPIDAEMIA
     Dosage: 80MG   HS  ORAL;  40MG  HS  ORAL
     Route: 048
     Dates: start: 20050728, end: 20050805
  3. CHOLESTYRAMINE [Concomitant]
  4. ALEVOX [Concomitant]

REACTIONS (4)
  - ARTHRALGIA [None]
  - ASTHENIA [None]
  - GOUT [None]
  - URINARY TRACT INFECTION [None]
